FAERS Safety Report 22362808 (Version 1)
Quarter: 2023Q2

REPORT INFORMATION
  Report Type: Spontaneous
  Country: JP (occurrence: JP)
  Receive Date: 20230524
  Receipt Date: 20230524
  Transmission Date: 20230721
  Serious: Yes (Other)
  Sender: FDA-Public Use
  Company Number: JP-BRISTOL-MYERS SQUIBB COMPANY-2023-072474

PATIENT

DRUGS (2)
  1. ELIQUIS [Suspect]
     Active Substance: APIXABAN
     Indication: Product used for unknown indication
     Dosage: PATIENT RECEIVED APIXABAN AT A REDUCED DOSE.
  2. ELIQUIS [Suspect]
     Active Substance: APIXABAN
     Dosage: APIXABAN ADMINISTRATION WAS RE-STARTED AT THE STANDARD DOSE.

REACTIONS (2)
  - Cerebral infarction [Unknown]
  - Intentional product use issue [Unknown]
